FAERS Safety Report 6095384-5 (Version None)
Quarter: 2009Q1

REPORT INFORMATION
  Report Type: 
  Country: None (occurrence: None)
  Receive Date: 20090227
  Receipt Date: 20080620
  Transmission Date: 20090719
  Serious: No
  Sender: FDA-Public Use
  Company Number: A0716716A

PATIENT
  Age: 19 Year
  Sex: Male
  Weight: 79.1 kg

DRUGS (2)
  1. LAMICTAL [Suspect]
     Dosage: 250MG TWICE PER DAY
     Route: 048
  2. TRILEPTAL [Concomitant]
     Dates: end: 20080617

REACTIONS (3)
  - ERYTHEMA [None]
  - FLUSHING [None]
  - URTICARIA [None]
